FAERS Safety Report 10064297 (Version 1)
Quarter: 2014Q2

REPORT INFORMATION
  Report Type: Spontaneous
  Country: GB (occurrence: GB)
  Receive Date: 20140408
  Receipt Date: 20140408
  Transmission Date: 20141212
  Serious: Yes (Other)
  Sender: FDA-Public Use
  Company Number: GB-ACCORD-022828

PATIENT
  Age: 77 Year
  Sex: Male
  Weight: 61.8 kg

DRUGS (3)
  1. BENDROFLUMETHIAZIDE [Concomitant]
     Dates: start: 20140227
  2. LISINOPRIL [Concomitant]
     Dates: start: 20140227
  3. SIMVASTATIN [Suspect]
     Indication: PRODUCT USED FOR UNKNOWN INDICATION

REACTIONS (1)
  - Rash erythematous [Recovered/Resolved]
